FAERS Safety Report 6199718-2 (Version None)
Quarter: 2009Q2

REPORT INFORMATION
  Report Type: 
  Country: None (occurrence: None)
  Receive Date: 20090522
  Receipt Date: 20090513
  Transmission Date: 20091009
  Serious: Yes (Hospitalization)
  Sender: FDA-Public Use
  Company Number: JP-PFIZER INC-2009214609

PATIENT
  Age: 75 Year

DRUGS (3)
  1. BANAN [Suspect]
     Indication: NASOPHARYNGITIS
     Dosage: UNK
     Route: 048
     Dates: start: 20090503, end: 20090505
  2. CRAVIT [Suspect]
     Indication: NASOPHARYNGITIS
     Dosage: UNK
     Route: 048
     Dates: start: 20090503, end: 20090505
  3. PELEX [Concomitant]

REACTIONS (2)
  - GLOSSODYNIA [None]
  - TOXIC SKIN ERUPTION [None]
